FAERS Safety Report 7132420-9 (Version None)
Quarter: 2010Q4

REPORT INFORMATION
  Report Type: 
  Country: None (occurrence: None)
  Receive Date: 20101202
  Receipt Date: 20101122
  Transmission Date: 20110411
  Serious: Yes (Other)
  Sender: FDA-Public Use
  Company Number: ZA-PFIZER INC-2010155468

PATIENT
  Sex: Female

DRUGS (3)
  1. LYRICA [Suspect]
     Indication: FIBROMYALGIA
     Dosage: 25 MG, 1X/DAY NOCTE
     Route: 048
     Dates: start: 20100101
  2. LYRICA [Suspect]
     Dosage: 50 MG, 1X/DAY NOCTE
     Route: 048
     Dates: start: 20100101
  3. CYMBALTA [Concomitant]
     Dosage: UNK
     Route: 048

REACTIONS (4)
  - COUGH [None]
  - GASTROOESOPHAGEAL REFLUX DISEASE [None]
  - SINUS DISORDER [None]
  - THROAT IRRITATION [None]
